FAERS Safety Report 6077154-7 (Version None)
Quarter: 2009Q1

REPORT INFORMATION
  Report Type: 
  Country: None (occurrence: None)
  Receive Date: 20090213
  Receipt Date: 20090205
  Transmission Date: 20090719
  Serious: Yes (Life-Threatening, Hospitalization)
  Sender: FDA-Public Use
  Company Number: US-JNJFOC-20090202471

PATIENT
  Sex: Male
  Weight: 68.04 kg

DRUGS (4)
  1. REMICADE [Suspect]
     Route: 042
  2. REMICADE [Suspect]
     Indication: CROHN'S DISEASE
     Route: 042
  3. IMURAN [Suspect]
     Indication: INFLUENZA IMMUNISATION
     Route: 048
  4. FLU VACCINE [Concomitant]

REACTIONS (3)
  - HISTOPLASMOSIS DISSEMINATED [None]
  - RENAL FAILURE [None]
  - RESPIRATORY DISTRESS [None]
